FAERS Safety Report 9022098 (Version 1)
Quarter: 2013Q1

REPORT INFORMATION
  Report Type: Report from Study
  Country: JP (occurrence: JP)
  Receive Date: 20130118
  Receipt Date: 20130118
  Transmission Date: 20140127
  Serious: Yes (Other)
  Sender: FDA-Public Use
  Company Number: JP-GLAXOSMITHKLINE-B0858770A

PATIENT
  Age: 61 None
  Sex: Female
  Weight: 61 kg

DRUGS (13)
  1. TYKERB [Suspect]
     Indication: BREAST CANCER
     Dosage: 1250MG PER DAY
     Route: 048
     Dates: start: 20090710, end: 20090729
  2. TYKERB [Suspect]
     Indication: BREAST CANCER
     Dosage: 1000MG PER DAY
     Route: 048
     Dates: start: 20090819, end: 20091008
  3. XELODA [Suspect]
     Indication: BREAST CANCER
     Dosage: 2400MG PER DAY
     Route: 048
     Dates: start: 20090710, end: 20090721
  4. ZOMETA [Concomitant]
     Indication: BREAST CANCER
     Route: 042
     Dates: start: 20090212, end: 20090806
  5. LETROZOLE [Concomitant]
     Indication: BREAST CANCER
     Dosage: 25MG PER DAY
     Route: 048
     Dates: end: 20091021
  6. FUROSEMIDE [Concomitant]
     Indication: PLEURAL EFFUSION
     Route: 048
     Dates: end: 20091023
  7. ALDACTONE A [Concomitant]
     Indication: PLEURAL EFFUSION
     Route: 048
     Dates: end: 20091021
  8. GLYCYRON [Concomitant]
     Indication: LIVER DISORDER
     Route: 048
     Dates: end: 20091021
  9. URSO [Concomitant]
     Indication: LIVER DISORDER
     Route: 048
     Dates: end: 20091021
  10. LIVACT [Concomitant]
     Indication: LIVER DISORDER
     Route: 048
     Dates: end: 20091021
  11. PYDOXAL [Concomitant]
     Indication: PALMAR-PLANTAR ERYTHRODYSAESTHESIA SYNDROME
     Route: 048
     Dates: end: 20090924
  12. CHINESE MEDICINE [Concomitant]
     Indication: ILLUSION
     Route: 048
     Dates: start: 20090704, end: 20090923
  13. METHYCOBAL [Concomitant]
     Indication: ILLUSION
     Route: 048
     Dates: start: 20090704, end: 20090923

REACTIONS (3)
  - Pancytopenia [Recovered/Resolved]
  - Diarrhoea [Recovered/Resolved]
  - Nausea [Recovered/Resolved]
